FAERS Safety Report 10074330 (Version 2)
Quarter: 2014Q2

REPORT INFORMATION
  Report Type: Report from Study
  Country: JP (occurrence: JP)
  Receive Date: 20140411
  Receipt Date: 20140411
  Transmission Date: 20141212
  Serious: Yes (Other)
  Sender: FDA-Public Use
  Company Number: JP-TAKEDA-TCI2013A04061

PATIENT
  Age: 74 Year
  Sex: Female
  Weight: 50 kg

DRUGS (9)
  1. ALOGLIPTIN [Suspect]
     Indication: TYPE 2 DIABETES MELLITUS
     Dosage: 25 MG, QD
     Route: 048
     Dates: start: 20110307, end: 20130831
  2. METACT COMBINATION TABLETS HD [Concomitant]
     Indication: TYPE 2 DIABETES MELLITUS
     Dosage: 1 DF, QD
     Route: 048
     Dates: start: 20110307
  3. UNISIA [Concomitant]
     Dosage: 1 DF, QD, UNISIA HD, 1 T
     Route: 048
     Dates: end: 20110925
  4. UNISIA [Concomitant]
     Dosage: 1 DF, QD, UNISIA LD, 1 T
     Route: 048
     Dates: start: 20110926
  5. TAKEPRON [Concomitant]
     Dosage: 15 MG, QD
     Route: 048
     Dates: start: 20110307
  6. ALDACTONE                          /00006201/ [Concomitant]
     Dosage: 25 MG, 1 DAYS
     Route: 048
     Dates: start: 20110307, end: 20110424
  7. CRESTOR [Concomitant]
     Dosage: 2.5 MG, 1 DAYS
     Route: 048
     Dates: start: 20110307
  8. BAYASPIRIN [Concomitant]
     Dosage: 100 MG, 1 DAYS
     Route: 048
     Dates: start: 20110307
  9. NAUZELIN [Concomitant]
     Dosage: 30 MG, 1 DAYS
     Route: 048
     Dates: start: 20111028, end: 20111218

REACTIONS (1)
  - Parkinson^s disease [Recovering/Resolving]
